FAERS Safety Report 7752668-X (Version None)
Quarter: 2011Q3

REPORT INFORMATION
  Report Type: 
  Country: None (occurrence: None)
  Receive Date: 20110915
  Receipt Date: 20110901
  Transmission Date: 20111222
  Serious: Yes (Other)
  Sender: FDA-Public Use
  Company Number: DE-US-EMD SERONO, INC.-7073620

PATIENT
  Sex: Female
  Weight: 85 kg

DRUGS (1)
  1. REBIF [Suspect]
     Indication: MULTIPLE SCLEROSIS
     Route: 058
     Dates: start: 20010101, end: 20110201

REACTIONS (2)
  - MATERNAL EXPOSURE DURING PREGNANCY [None]
  - LIVER DISORDER [None]
